FAERS Safety Report 24248046 (Version 1)
Quarter: 2024Q3

REPORT INFORMATION
  Report Type: Spontaneous
  Country: FR (occurrence: FR)
  Receive Date: 20240826
  Receipt Date: 20240826
  Transmission Date: 20241016
  Serious: Yes (Life-Threatening, Hospitalization, Other)
  Sender: AUROBINDO
  Company Number: FR-AFSSAPS-GR2024001011

PATIENT
  Age: 27 Year
  Sex: Female

DRUGS (5)
  1. ALPRAZOLAM [Suspect]
     Active Substance: ALPRAZOLAM
     Indication: Intentional overdose
     Dosage: 26 DOSAGE FORM, 1 TOTAL (0.5 MG X 26 CP)
     Route: 048
     Dates: start: 20240716, end: 20240716
  2. DIAZEPAM [Suspect]
     Active Substance: DIAZEPAM
     Indication: Intentional overdose
     Dosage: 37 DOSAGE FORM, 1 TOTAL (10 MG X 37 CP)
     Route: 048
     Dates: start: 20240716, end: 20240716
  3. ZOLPIDEM [Suspect]
     Active Substance: ZOLPIDEM TARTRATE
     Indication: Intentional overdose
     Dosage: 14 DOSAGE FORM, 1 TOTAL (10 MG X 14 CP)
     Route: 048
     Dates: start: 20240716, end: 20240716
  4. LOXAPINE [Suspect]
     Active Substance: LOXAPINE
     Indication: Intentional overdose
     Dosage: 10 DOSAGE FORM, 1 TOTAL (25 MG X 10 CP)
     Route: 048
     Dates: start: 20240716, end: 20240716
  5. METHADONE [Suspect]
     Active Substance: METHADONE HYDROCHLORIDE
     Indication: Intentional overdose
     Dosage: 161 MILLIGRAM, 1 TOTAL
     Route: 048
     Dates: start: 20240716, end: 20240716

REACTIONS (3)
  - Depressed level of consciousness [Recovering/Resolving]
  - Poisoning deliberate [Recovered/Resolved]
  - Miosis [Recovering/Resolving]

NARRATIVE: CASE EVENT DATE: 20240716
